FAERS Safety Report 5264657-8 (Version None)
Quarter: 2007Q1

REPORT INFORMATION
  Report Type: 
  Country: None (occurrence: None)
  Receive Date: 20070314
  Receipt Date: 20070209
  Transmission Date: 20070707
  Serious: Yes (Hospitalization)
  Sender: FDA-Public Use
  Company Number: US-JNJFOC-20070302931

PATIENT
  Age: 60 Year
  Sex: Female
  Weight: 53.98 kg

DRUGS (7)
  1. FENTANYL TRANSDERMAL SYSTEM [Suspect]
     Indication: VIRAL INFECTION
     Route: 062
  2. CLONIDINE [Concomitant]
     Indication: HYPERTENSION
     Route: 048
  3. METOPROLOL SUCCINATE [Concomitant]
     Indication: HYPERTENSION
     Route: 048
  4. HYDROCHLOROTHIAZIDINE [Concomitant]
     Indication: BLOOD PRESSURE
     Route: 048
  5. PREMARIN [Concomitant]
     Indication: DRUG USE FOR UNKNOWN INDICATION
     Route: 048
  6. SYNTHROID [Concomitant]
     Indication: THYROID DISORDER
     Route: 048
  7. FLUTICASONE PROPIONATE [Concomitant]
     Indication: HYPERSENSITIVITY
     Route: 055

REACTIONS (12)
  - DEPERSONALISATION [None]
  - DYSKINESIA [None]
  - ELECTROCARDIOGRAM ABNORMAL [None]
  - FEELING ABNORMAL [None]
  - FEELING HOT [None]
  - HEART RATE INCREASED [None]
  - HYPOTENSION [None]
  - LOSS OF CONSCIOUSNESS [None]
  - NAUSEA [None]
  - TREMOR [None]
  - URINARY INCONTINENCE [None]
  - VISION BLURRED [None]
